FAERS Safety Report 23767427 (Version 2)
Quarter: 2024Q2

REPORT INFORMATION
  Report Type: Spontaneous
  Country: US (occurrence: US)
  Receive Date: 20240422
  Receipt Date: 20240509
  Transmission Date: 20240716
  Serious: No
  Sender: FDA-Public Use
  Company Number: US-ALCON LABORATORIES-ALC2023US002589

PATIENT
  Age: 44 Year
  Sex: Male

DRUGS (2)
  1. ROCKLATAN [Suspect]
     Active Substance: LATANOPROST\NETARSUDIL MESYLATE
     Indication: Product used for unknown indication
     Dosage: 1 DRP EACH EYE BEFORE BEDTIME
     Route: 047
     Dates: start: 20230519, end: 20230520
  2. ROCKLATAN [Suspect]
     Active Substance: LATANOPROST\NETARSUDIL MESYLATE
     Dosage: 1 DRP EACH EYE BEFORE BEDTIME
     Route: 047
     Dates: start: 20230520, end: 20230520

REACTIONS (3)
  - Product storage error [Unknown]
  - Ocular hyperaemia [Recovered/Resolved]
  - Intraocular pressure increased [Recovered/Resolved]

NARRATIVE: CASE EVENT DATE: 20230520
